FAERS Safety Report 5656870-2 (Version None)
Quarter: 2008Q1

REPORT INFORMATION
  Report Type: 
  Country: None (occurrence: None)
  Receive Date: 20080310
  Receipt Date: 20080303
  Transmission Date: 20080703
  Serious: Yes (Other)
  Sender: FDA-Public Use
  Company Number: US-ALLERGAN-0802510US

PATIENT
  Sex: Female

DRUGS (2)
  1. REFRESH PLUS [Suspect]
     Indication: DRY EYE
     Dosage: UNK, UNKNOWN
     Route: 047
     Dates: start: 20070101
  2. REFRESH PLUS [Suspect]
     Dosage: UNK, UNKNOWN
     Route: 047
     Dates: start: 20080201

REACTIONS (1)
  - HEART RATE INCREASED [None]
